FAERS Safety Report 10682529 (Version 3)
Quarter: 2015Q2

REPORT INFORMATION
  Report Type: Spontaneous
  Country: US (occurrence: US)
  Receive Date: 20141230
  Receipt Date: 20150422
  Transmission Date: 20150821
  Serious: Yes (Hospitalization, Disabling, Other)
  Sender: FDA-Public Use
  Company Number: US-ASTELLAS-2014US020918

PATIENT
  Age: 21 Year
  Sex: Male

DRUGS (1)
  1. PROGRAF [Suspect]
     Active Substance: TACROLIMUS\TACROLIMUS ANHYDROUS
     Indication: INTESTINAL TRANSPLANT
     Route: 048
     Dates: start: 20140807

REACTIONS (6)
  - Transplant rejection [Unknown]
  - Haemorrhage [Unknown]
  - Intestinal haemorrhage [Unknown]
  - Disability [Unknown]
  - Product use issue [Unknown]
  - Pancreatitis [Unknown]

NARRATIVE: CASE EVENT DATE: 201503
